FAERS Safety Report 8792135 (Version 2)
Quarter: 2013Q3

REPORT INFORMATION
  Report Type: Report from Study
  Country: JP (occurrence: JP)
  Receive Date: 20120918
  Receipt Date: 20130913
  Transmission Date: 20140515
  Serious: Yes (Hospitalization)
  Sender: FDA-Public Use
  Company Number: JP-NOVOPROD-359534

PATIENT
  Age: 7 Year
  Sex: Male
  Weight: 19 kg

DRUGS (1)
  1. NORDITROPIN FLEXPROCHU 10 MG/ML [Suspect]
     Indication: GROWTH HORMONE DEFICIENCY
     Dosage: 3.15 -3.5 MG/ WEEK
     Route: 065
     Dates: start: 20110707

REACTIONS (2)
  - Limb asymmetry [Recovered/Resolved]
  - Condition aggravated [Recovered/Resolved]
